FAERS Safety Report 17137185 (Version 10)
Quarter: 2021Q3

REPORT INFORMATION
  Report Type: Spontaneous
  Country: US (occurrence: US)
  Receive Date: 20191210
  Receipt Date: 20210802
  Transmission Date: 20211014
  Serious: Yes (Other)
  Sender: FDA-Public Use
  Company Number: US-PFIZER INC-2019533325

PATIENT
  Age: 59 Year
  Sex: Female
  Weight: 72 kg

DRUGS (1)
  1. DETROL LA [Suspect]
     Active Substance: TOLTERODINE TARTRATE
     Indication: INCONTINENCE
     Dosage: 4 MG, DAILY
     Route: 048

REACTIONS (5)
  - Pain in extremity [Unknown]
  - Rotator cuff syndrome [Recovering/Resolving]
  - Fall [Unknown]
  - Scar [Not Recovered/Not Resolved]
  - Scar pain [Unknown]

NARRATIVE: CASE EVENT DATE: 20191026
